FAERS Safety Report 7651371-4 (Version None)
Quarter: 2011Q3

REPORT INFORMATION
  Report Type: 
  Country: None (occurrence: None)
  Receive Date: 20110802
  Receipt Date: 20110719
  Transmission Date: 20111222
  Serious: No
  Sender: FDA-Public Use
  Company Number: PHHY2011US59797

PATIENT
  Sex: Male

DRUGS (6)
  1. LOTENSIN [Concomitant]
     Dosage: 10 MG, DAILY
  2. LIPITOR [Concomitant]
     Dosage: 20 MG, DAILY
  3. TASIGNA [Suspect]
     Dosage: 300 MG, BID
     Route: 048
     Dates: start: 20101117
  4. METFORMIN HCL [Concomitant]
     Dosage: 500 MG, UNK
  5. TASIGNA [Suspect]
     Indication: CHRONIC MYELOID LEUKAEMIA
     Dosage: 300 MG, BID
     Route: 048
     Dates: start: 20101019, end: 20101110
  6. SPRYCEL [Concomitant]
     Dosage: 100 MG, DAILY

REACTIONS (5)
  - WEIGHT DECREASED [None]
  - BACK PAIN [None]
  - NAUSEA [None]
  - VOMITING [None]
  - DECREASED APPETITE [None]
